FAERS Safety Report 4666604-6 (Version None)
Quarter: 2005Q2

REPORT INFORMATION
  Report Type: 
  Country: None (occurrence: None)
  Receive Date: 20050519
  Receipt Date: 20041020
  Transmission Date: 20051028
  Serious: Yes (Other)
  Sender: FDA-Public Use
  Company Number: PHBS2004IL13884

PATIENT
  Age: 67 Year
  Sex: Male

DRUGS (2)
  1. AREDIA [Suspect]
     Indication: LYMPHOMA
     Dosage: 90 MG
     Route: 042
     Dates: start: 20021001, end: 20040601
  2. CHEMOTHERAPEUTICS,OTHER [Concomitant]
     Route: 065

REACTIONS (2)
  - OSTEONECROSIS [None]
  - SURGERY [None]
